FAERS Safety Report 8954578 (Version 1)
Quarter: 2012Q4

REPORT INFORMATION
  Report Type: 
  Country: GB (occurrence: GB)
  Receive Date: 20121209
  Receipt Date: 20121209
  Transmission Date: 20130627
  Serious: Yes (Hospitalization, Other)
  Sender: FDA-Public Use
  Company Number: GB-ROXANE LABORATORIES, INC.-2012-RO-02512RO

PATIENT
  Age: 31 Year
  Sex: Male

DRUGS (1)
  1. CALCIUM CARBONATE [Suspect]
     Indication: GASTRITIS ALCOHOLIC
     Route: 048

REACTIONS (3)
  - Milk-alkali syndrome [Recovered/Resolved]
  - Convulsion [Unknown]
  - Conjunctivitis [Recovered/Resolved]
